FAERS Safety Report 23956467 (Version 3)
Quarter: 2024Q4

REPORT INFORMATION
  Report Type: Spontaneous
  Country: US (occurrence: US)
  Receive Date: 20240610
  Receipt Date: 20241010
  Transmission Date: 20250114
  Serious: No
  Sender: SANOFI AVENTIS
  Company Number: US-SANOFI-02077602

PATIENT
  Age: 6 Year
  Sex: Female
  Weight: 26 kg

DRUGS (7)
  1. DUPIXENT [Suspect]
     Active Substance: DUPILUMAB
     Indication: Multiple allergies
     Dosage: 300 MG, QM
  2. DUPIXENT [Suspect]
     Active Substance: DUPILUMAB
     Indication: Dermatitis allergic
     Dosage: 200 MG, QOW
     Route: 058
  3. DUPIXENT [Suspect]
     Active Substance: DUPILUMAB
     Indication: Dermatitis atopic
  4. MOMETASONE [Concomitant]
     Active Substance: MOMETASONE
  5. CLOBETASOL [Concomitant]
     Active Substance: CLOBETASOL
  6. TACROLIMUS [Concomitant]
     Active Substance: TACROLIMUS
  7. TRIAMCINOLONE [Concomitant]
     Active Substance: TRIAMCINOLONE

REACTIONS (3)
  - Intercepted product storage error [Unknown]
  - Off label use [Unknown]
  - Off label use [Unknown]
